FAERS Safety Report 5268651-2 (Version None)
Quarter: 2007Q1

REPORT INFORMATION
  Report Type: 
  Country: None (occurrence: None)
  Receive Date: 20070315
  Receipt Date: 20070315
  Transmission Date: 20070707
  Serious: Yes (Death, Hospitalization)
  Sender: FDA-Public Use
  Company Number: None

PATIENT
  Sex: Female
  Weight: 42.5 kg

DRUGS (4)
  1. CYCLOPHOSPHAMIDE [Suspect]
     Dosage: 675 MG
     Dates: end: 20070223
  2. TAXOTERE [Suspect]
     Dosage: 103 MG
     Dates: end: 20070223
  3. DOXORUBICIN HYDROCHLORIDE [Suspect]
     Dosage: 69 MG
     Dates: end: 20070223
  4. NEUPOGEN [Concomitant]

REACTIONS (7)
  - COLITIS [None]
  - GASTROINTESTINAL NECROSIS [None]
  - MESENTERIC VEIN THROMBOSIS [None]
  - MULTI-ORGAN FAILURE [None]
  - NEUTROPENIA [None]
  - SEPTIC SHOCK [None]
  - URINARY RETENTION [None]
